FAERS Safety Report 5819815-8 (Version None)
Quarter: 2008Q3

REPORT INFORMATION
  Report Type: 
  Country: None (occurrence: None)
  Receive Date: 20080723
  Receipt Date: 20080717
  Transmission Date: 20090109
  Serious: Yes (Death)
  Sender: FDA-Public Use
  Company Number: JP-ABBOTT-08P-087-0458903-00

PATIENT
  Age: 82 Year
  Sex: Male
  Weight: 40 kg

DRUGS (5)
  1. LEUPROLIDE ACETATE [Suspect]
     Indication: PROSTATE CANCER STAGE II
     Route: 058
     Dates: start: 20060228, end: 20071009
  2. LEUPROLIDE ACETATE [Suspect]
     Indication: PROSTATE CANCER
     Dates: end: 20060131
  3. BICALUTAMIDE [Concomitant]
     Indication: PROSTATE CANCER STAGE II
     Route: 048
     Dates: start: 20060121, end: 20080104
  4. ALDIOXA [Concomitant]
     Indication: GASTRITIS
     Route: 048
     Dates: start: 20060121, end: 20070807
  5. TEPRENONE [Concomitant]
     Indication: GASTRITIS
     Route: 048
     Dates: start: 20070807, end: 20080104

REACTIONS (1)
  - CARDIAC FAILURE ACUTE [None]
